FAERS Safety Report 7973230-X (Version None)
Quarter: 2011Q4

REPORT INFORMATION
  Report Type: 
  Country: None (occurrence: None)
  Receive Date: 20111213
  Receipt Date: 20111207
  Transmission Date: 20120403
  Serious: Yes (Other)
  Sender: FDA-Public Use
  Company Number: PHEH2011US011197

PATIENT
  Age: 63 Year
  Sex: Male

DRUGS (13)
  1. DIOVAN [Suspect]
     Dosage: 320 MG, QD
  2. ACETAMINOPHEN [Concomitant]
  3. ZOLPIDEM [Concomitant]
  4. COLCHICINE [Concomitant]
  5. DILPIAZEM [Concomitant]
     Dosage: 60 MG, BID
  6. WARFARIN SODIUM [Concomitant]
     Dosage: 5 MG, UNK
  7. LORATADINE [Concomitant]
     Dosage: 10 MG, UNK
  8. PRAVASTATIN [Concomitant]
     Dosage: 20 MG, UNK
  9. XANAX [Concomitant]
  10. ACIPHEX [Concomitant]
     Dosage: 20 MG, UNK
  11. NITROSTAT [Concomitant]
  12. HYDROCHLOROTHIAZIDE [Concomitant]
     Dosage: 25 MG, UNK
  13. SOTALOL HCL [Concomitant]
     Dosage: 80 MG, BID

REACTIONS (2)
  - CEREBROVASCULAR ACCIDENT [None]
  - AMNESIA [None]
